FAERS Safety Report 4361269-5 (Version None)
Quarter: 2004Q2

REPORT INFORMATION
  Report Type: 
  Country: None (occurrence: None)
  Receive Date: 20040520
  Receipt Date: 20040518
  Transmission Date: 20050107
  Serious: Yes (Hospitalization, Other)
  Sender: FDA-Public Use
  Company Number: US-GLAXOSMITHKLINE-A0511389A

PATIENT
  Age: 22 Year
  Sex: Female

DRUGS (1)
  1. WELLBUTRIN XL [Suspect]
     Indication: POSTPARTUM DEPRESSION
     Dosage: 150MG PER DAY
     Route: 048

REACTIONS (3)
  - ATHETOSIS [None]
  - COGNITIVE DISORDER [None]
  - DYSKINESIA [None]
